FAERS Safety Report 10204171 (Version 2)
Quarter: 2014Q2

REPORT INFORMATION
  Report Type: Spontaneous
  Country: PT (occurrence: PT)
  Receive Date: 20140529
  Receipt Date: 20140627
  Transmission Date: 20141212
  Serious: Yes (Hospitalization)
  Sender: FDA-Public Use
  Company Number: PT-B.I. PHARMACEUTICALS,INC./RIDGEFIELD-2014-BI-23054PN

PATIENT
  Age: 76 Year
  Sex: Male

DRUGS (7)
  1. PRADAXA [Suspect]
     Indication: ATRIAL FIBRILLATION
     Dosage: 220 MG
     Route: 065
     Dates: start: 201303, end: 20131219
  2. VALPROATE [Concomitant]
     Route: 065
     Dates: start: 201312
  3. PARACETAMOL [Concomitant]
     Route: 065
  4. CO-DIOVAN [Concomitant]
     Route: 065
  5. CONCOR [Concomitant]
     Route: 065
  6. NORVASC [Concomitant]
     Route: 065
  7. CORDARONE [Concomitant]
     Route: 065

REACTIONS (4)
  - Hemiparesis [Recovered/Resolved]
  - Movement disorder [Recovered/Resolved]
  - Subdural haematoma [Recovered/Resolved]
  - Fall [Not Recovered/Not Resolved]
